FAERS Safety Report 8769537 (Version 1)
Quarter: 2012Q4

REPORT INFORMATION
  Report Type: 
  Country: US (occurrence: US)
  Receive Date: 20120904
  Receipt Date: 20120904
  Transmission Date: 20130627
  Serious: Yes (Other)
  Sender: FDA-Public Use
  Company Number: US-ELI_LILLY_AND_COMPANY-US201208009649

PATIENT
  Age: 42 Year
  Sex: Female
  Weight: 116.1 kg

DRUGS (3)
  1. PROZAC [Suspect]
     Indication: DEPRESSION
     Dosage: 10 mg, each morning
  2. WELLBUTRIN [Concomitant]
     Dosage: 150 mg, bid
  3. ABILIFY [Concomitant]
     Dosage: 20 mg, each evening

REACTIONS (7)
  - Spinal fusion surgery [Unknown]
  - Neck surgery [Unknown]
  - Surgery [Unknown]
  - Weight increased [Unknown]
  - Blood pressure increased [Unknown]
  - Libido disorder [Unknown]
  - Drug ineffective [Unknown]
